FAERS Safety Report 13851642 (Version 3)
Quarter: 2017Q3

REPORT INFORMATION
  Report Type: Spontaneous
  Country: US (occurrence: US)
  Receive Date: 20170809
  Receipt Date: 20170926
  Transmission Date: 20171127
  Serious: Yes (Life-Threatening, Hospitalization, Other)
  Sender: FDA-Public Use
  Company Number: US-CELGENEUS-USA-20170709356

PATIENT
  Sex: Male
  Weight: 54.48 kg

DRUGS (1)
  1. OTEZLA [Suspect]
     Active Substance: APREMILAST
     Indication: PSORIASIS
     Dosage: 60 MILLIGRAM
     Route: 048
     Dates: start: 201607

REACTIONS (2)
  - Squamous cell carcinoma of skin [Unknown]
  - Malaise [Unknown]

NARRATIVE: CASE EVENT DATE: 2017
